FAERS Safety Report 17854047 (Version 1)
Quarter: 2020Q2

REPORT INFORMATION
  Report Type: Spontaneous
  Country: CN (occurrence: CN)
  Receive Date: 20200603
  Receipt Date: 20200603
  Transmission Date: 20200714
  Serious: Yes (Hospitalization)
  Sender: FDA-Public Use
  Company Number: CN-ROCHE-2613824

PATIENT
  Age: 55 Year
  Sex: Male
  Weight: 70 kg

DRUGS (8)
  1. AVASTIN [Suspect]
     Active Substance: BEVACIZUMAB
     Indication: CANCER SURGERY
     Route: 041
     Dates: start: 20200508, end: 20200508
  2. FLUOROURACIL. [Suspect]
     Active Substance: FLUOROURACIL
     Indication: CANCER SURGERY
     Route: 042
     Dates: start: 20200508, end: 20200509
  3. IRINOTECAN HYDROCHLORIDE. [Suspect]
     Active Substance: IRINOTECAN HYDROCHLORIDE
     Indication: CANCER SURGERY
     Route: 041
     Dates: start: 20200508, end: 20200508
  4. CALCIUM LEVOFOLINATE [Concomitant]
     Active Substance: LEVOLEUCOVORIN CALCIUM
     Indication: CANCER SURGERY
     Route: 041
     Dates: start: 20200508, end: 20200508
  5. CALCIUM LEVOFOLINATE [Concomitant]
     Active Substance: LEVOLEUCOVORIN CALCIUM
     Indication: METASTASES TO LUNG
  6. IRINOTECAN HYDROCHLORIDE. [Suspect]
     Active Substance: IRINOTECAN HYDROCHLORIDE
     Indication: METASTASES TO LUNG
     Route: 041
     Dates: start: 20200525
  7. FLUOROURACIL. [Suspect]
     Active Substance: FLUOROURACIL
     Indication: METASTASES TO LUNG
     Route: 042
     Dates: start: 20200525
  8. AVASTIN [Suspect]
     Active Substance: BEVACIZUMAB
     Indication: METASTASES TO LUNG
     Route: 041
     Dates: start: 20200525

REACTIONS (1)
  - Bone marrow failure [Recovered/Resolved]

NARRATIVE: CASE EVENT DATE: 20200521
